FAERS Safety Report 13347058 (Version 1)
Quarter: 2017Q1

REPORT INFORMATION
  Report Type: Spontaneous
  Country: US (occurrence: US)
  Receive Date: 20170317
  Receipt Date: 20170317
  Transmission Date: 20170428
  Serious: Yes (Other)
  Sender: FDA-Public Use
  Company Number: US-BAYER-2017-046677

PATIENT
  Sex: Female

DRUGS (1)
  1. MILK OF MAGNESIA ORIGINAL [Suspect]
     Active Substance: MAGNESIUM HYDROXIDE
     Indication: GASTROINTESTINAL DISORDER
     Dosage: 3 TO 4 TIMES A WEEK, ALMOST NIGHTLY OR EVERY OTHER NIGHT
     Route: 065

REACTIONS (2)
  - Product use issue [Unknown]
  - Drug dependence [Unknown]
